FAERS Safety Report 23653476 (Version 1)
Quarter: 2024Q1

REPORT INFORMATION
  Report Type: Other
  Country: JP (occurrence: JP)
  Receive Date: 20240320
  Receipt Date: 20240320
  Transmission Date: 20240409
  Serious: Yes (Life-Threatening, Hospitalization, Other)
  Sender: FDA-Public Use
  Company Number: JP-Merck Healthcare KGaA-2024014397

PATIENT
  Age: 66 Year
  Sex: Male

DRUGS (1)
  1. METGLUCO [Suspect]
     Active Substance: METFORMIN HYDROCHLORIDE
     Indication: Type 2 diabetes mellitus
     Route: 048

REACTIONS (6)
  - Cardiac failure congestive [Unknown]
  - Postrenal failure [Unknown]
  - Urinary retention [Unknown]
  - Septic shock [Unknown]
  - Lactic acidosis [Recovering/Resolving]
  - Prostatitis [Unknown]
